FAERS Safety Report 6957332-2 (Version None)
Quarter: 2010Q3

REPORT INFORMATION
  Report Type: 
  Country: None (occurrence: None)
  Receive Date: 20100831
  Receipt Date: 20100825
  Transmission Date: 20110219
  Serious: Yes (Other)
  Sender: FDA-Public Use
  Company Number: US-ASTRAZENECA-2007UW21471

PATIENT
  Age: 30 Year
  Sex: Female
  Weight: 88.5 kg

DRUGS (14)
  1. SEROQUEL [Suspect]
     Indication: ANXIETY
     Route: 048
     Dates: start: 20020201, end: 20061116
  2. SEROQUEL [Suspect]
     Dosage: 25-150 MG
     Route: 048
     Dates: start: 20051110, end: 20060101
  3. INDERAL LA [Concomitant]
     Dates: start: 20051006
  4. CYCLOBENZAPRINE [Concomitant]
     Dates: start: 20051011
  5. NAPROXEN [Concomitant]
     Dates: start: 20051011
  6. TRAMADOL HCL [Concomitant]
     Dates: start: 20051017
  7. LORATADINE [Concomitant]
     Dates: start: 20051021
  8. BENZONATATE [Concomitant]
     Dates: start: 20051021
  9. CYMBALTA [Concomitant]
     Indication: DEPRESSION
     Dates: start: 20051026
  10. CYMBALTA [Concomitant]
     Indication: ANXIETY
     Dates: start: 20051026
  11. RANITIDINE [Concomitant]
     Dates: start: 20051102
  12. ALPRAZOLAM [Concomitant]
     Indication: DEPRESSION
     Dosage: 0.5-1.5 MG
     Dates: start: 20051107
  13. ALPRAZOLAM [Concomitant]
     Indication: ANXIETY
     Dosage: 0.5-1.5 MG
     Dates: start: 20051107
  14. ABILIFY [Concomitant]
     Dosage: 5-15 MG
     Dates: start: 20051110

REACTIONS (3)
  - GALLBLADDER DISORDER [None]
  - LIMB INJURY [None]
  - TYPE 2 DIABETES MELLITUS [None]
